FAERS Safety Report 15486497 (Version 2)
Quarter: 2019Q1

REPORT INFORMATION
  Report Type: Report from Study
  Country: None (occurrence: US)
  Receive Date: 20181011
  Receipt Date: 20190122
  Transmission Date: 20190417
  Serious: Yes (Other)
  Sender: FDA-Public Use
  Company Number: US-ABBVIE-18K-163-2339271-00

PATIENT
  Sex: Female

DRUGS (4)
  1. HUMIRA [Suspect]
     Active Substance: ADALIMUMAB
     Dosage: DAY 8
     Route: 058
     Dates: start: 20180405, end: 20180405
  2. HUMIRA [Suspect]
     Active Substance: ADALIMUMAB
     Route: 058
     Dates: start: 20180419, end: 2018
  3. HUMIRA [Suspect]
     Active Substance: ADALIMUMAB
     Indication: PSORIASIS
     Dosage: DAY 1
     Route: 058
     Dates: start: 20180329, end: 20180329
  4. HUMIRA [Suspect]
     Active Substance: ADALIMUMAB
     Route: 058
     Dates: start: 2018

REACTIONS (19)
  - Impaired quality of life [Unknown]
  - Defaecation urgency [Unknown]
  - Psoriatic arthropathy [Recovering/Resolving]
  - Frequent bowel movements [Unknown]
  - Skin irritation [Not Recovered/Not Resolved]
  - General physical condition abnormal [Not Recovered/Not Resolved]
  - Haemorrhoids [Unknown]
  - Pain in extremity [Not Recovered/Not Resolved]
  - Intentional product misuse [Unknown]
  - Anger [Unknown]
  - Post procedural haemorrhage [Unknown]
  - Frustration tolerance decreased [Unknown]
  - Emotional distress [Not Recovered/Not Resolved]
  - Helplessness [Unknown]
  - Emotional distress [Recovering/Resolving]
  - Injection site pain [Unknown]
  - Psoriasis [Unknown]
  - Device issue [Unknown]
  - Diarrhoea [Unknown]

NARRATIVE: CASE EVENT DATE: 2018
